FAERS Safety Report 18521433 (Version 2)
Quarter: 2020Q4

REPORT INFORMATION
  Report Type: Report from Study
  Country: US (occurrence: US)
  Receive Date: 20201119
  Receipt Date: 20201224
  Transmission Date: 20210114
  Serious: Yes (Other)
  Sender: FDA-Public Use
  Company Number: NVSC2020US298346

PATIENT
  Sex: Male

DRUGS (1)
  1. COSENTYX [Suspect]
     Active Substance: SECUKINUMAB
     Indication: ANKYLOSING SPONDYLITIS
     Dosage: 150 MG, QMO
     Route: 058

REACTIONS (7)
  - Vomiting [Recovered/Resolved]
  - Presyncope [Unknown]
  - Loss of consciousness [Recovered/Resolved]
  - Fall [Unknown]
  - Therapeutic product effect decreased [Unknown]
  - Back pain [Not Recovered/Not Resolved]
  - Wrong technique in product usage process [Unknown]
